FAERS Safety Report 18855108 (Version 1)
Quarter: 2021Q1

REPORT INFORMATION
  Report Type: Spontaneous
  Country: US (occurrence: US)
  Receive Date: 20210206
  Receipt Date: 20210206
  Transmission Date: 20210420
  Serious: No
  Sender: FDA-Public Use
  Company Number: US-009507513-2101USA004116

PATIENT
  Age: 79 Year
  Sex: Female

DRUGS (1)
  1. BELSOMRA [Suspect]
     Active Substance: SUVOREXANT
     Indication: INSOMNIA
     Dosage: 20 MILLIGRAM, EVERY NIGHT
     Route: 048
     Dates: start: 2020

REACTIONS (2)
  - Product dose omission issue [Unknown]
  - Insomnia [Unknown]

NARRATIVE: CASE EVENT DATE: 20201231
